FAERS Safety Report 9068353 (Version 1)
Quarter: 2013Q1

REPORT INFORMATION
  Report Type: Spontaneous
  Country: BE (occurrence: BE)
  Receive Date: 20130128
  Receipt Date: 20130128
  Transmission Date: 20140127
  Serious: Yes (Other)
  Sender: FDA-Public Use
  Company Number: BE-ROCHE-1182146

PATIENT
  Age: 77 Year
  Sex: Female
  Weight: 58.7 kg

DRUGS (10)
  1. HERCEPTIN [Suspect]
     Indication: BREAST CANCER METASTATIC
     Route: 065
     Dates: start: 20110701, end: 20120224
  2. HERCEPTIN [Suspect]
     Route: 065
     Dates: start: 20121102, end: 20121228
  3. XELODA [Suspect]
     Indication: BREAST CANCER METASTATIC
     Route: 065
     Dates: start: 20120302, end: 20120717
  4. XELODA [Suspect]
     Route: 065
     Dates: start: 20120322
  5. XELODA [Suspect]
     Route: 065
     Dates: start: 20120503
  6. FEMARA [Suspect]
     Indication: BREAST CANCER METASTATIC
     Route: 065
     Dates: start: 20111216, end: 20120302
  7. DOXORUBICINE [Suspect]
     Indication: BREAST CANCER METASTATIC
     Route: 065
     Dates: start: 20120727, end: 20121012
  8. PACLITAXEL [Suspect]
     Indication: BREAST CANCER METASTATIC
     Route: 065
     Dates: start: 20110601, end: 20111125
  9. LAPATINIB [Suspect]
     Indication: BREAST CANCER METASTATIC
     Route: 065
     Dates: start: 20120302, end: 20120629
  10. VINORELBINE [Suspect]
     Indication: BREAST CANCER METASTATIC
     Route: 065
     Dates: start: 20121102, end: 20121228

REACTIONS (2)
  - Disease progression [Unknown]
  - Metastases to liver [Unknown]
